FAERS Safety Report 6543042-2 (Version None)
Quarter: 2010Q1

REPORT INFORMATION
  Report Type: 
  Country: None (occurrence: None)
  Receive Date: 20100120
  Receipt Date: 20100114
  Transmission Date: 20100710
  Serious: Yes (Death, Other)
  Sender: FDA-Public Use
  Company Number: US-CELGENEUS-163-21880-10011025

PATIENT
  Sex: Female

DRUGS (11)
  1. REVLIMID [Suspect]
     Indication: MULTIPLE MYELOMA
     Route: 048
     Dates: start: 20081201, end: 20090101
  2. REVLIMID [Suspect]
     Route: 048
     Dates: start: 20080201
  3. REVLIMID [Suspect]
     Route: 048
     Dates: start: 20080601
  4. REVLIMID [Suspect]
     Route: 048
     Dates: start: 20080801
  5. REVLIMID [Suspect]
     Route: 048
     Dates: start: 20080901
  6. REVLIMID [Suspect]
     Route: 048
     Dates: start: 20081101
  7. PROCRIT [Concomitant]
     Indication: DRUG USE FOR UNKNOWN INDICATION
     Route: 065
  8. FENTANYL [Concomitant]
     Indication: DRUG USE FOR UNKNOWN INDICATION
  9. LEVOTHROID [Concomitant]
     Indication: DRUG USE FOR UNKNOWN INDICATION
     Route: 065
  10. ALKERAN [Concomitant]
     Indication: DRUG USE FOR UNKNOWN INDICATION
     Route: 065
  11. DEXAMETHASONE [Concomitant]
     Indication: DRUG USE FOR UNKNOWN INDICATION
     Route: 065

REACTIONS (2)
  - DEATH [None]
  - PLATELET COUNT DECREASED [None]
